FAERS Safety Report 9387064 (Version 3)
Quarter: 2014Q1

REPORT INFORMATION
  Report Type: Spontaneous
  Country: GB (occurrence: None)
  Receive Date: 20130702
  Receipt Date: 20140123
  Transmission Date: 20141002
  Serious: Yes (Life-Threatening, Hospitalization, Other)
  Sender: FDA-Public Use
  Company Number: 1776675

PATIENT
  Age: 52 Year
  Sex: Female
  Weight: 32.66 kg

DRUGS (3)
  1. METHOTREXATE [Suspect]
     Indication: PSORIASIS
     Route: 042
  2. RED CLOVER [Suspect]
     Indication: MENOPAUSAL SYMPTOMS
     Dosage: ONCE PER DAY.
     Route: 048
     Dates: start: 20130530, end: 20130603
  3. CITALOPRAM [Concomitant]

REACTIONS (4)
  - Vomiting [None]
  - Abdominal pain upper [None]
  - Toxicity to various agents [None]
  - Drug interaction [None]
